FAERS Safety Report 9582600 (Version 1)
Quarter: 2013Q4

REPORT INFORMATION
  Report Type: Spontaneous
  Country: US (occurrence: US)
  Receive Date: 20131002
  Receipt Date: 20131002
  Transmission Date: 20140711
  Serious: No
  Sender: FDA-Public Use
  Company Number: US-AMGEN-USASP2013041351

PATIENT
  Age: 56 Year
  Sex: Female
  Weight: 90.7 kg

DRUGS (6)
  1. ENBREL [Suspect]
     Indication: PRODUCT USED FOR UNKNOWN INDICATION
     Dosage: 50 MG, QWK
     Route: 058
  2. HYDROXYCHLOROQUINE [Concomitant]
     Dosage: 200 MG, UNK
  3. CRESTOR [Concomitant]
     Dosage: 10 MG, UNK
  4. CELEXA                             /00582602/ [Concomitant]
     Dosage: 10 MG, UNK
  5. PREDNISONE                         /00044702/ [Concomitant]
     Dosage: 10 MG, UNK
  6. ASA [Concomitant]
     Dosage: 81 MG, UNK

REACTIONS (1)
  - Injection site erythema [Unknown]
